FAERS Safety Report 17014022 (Version 3)
Quarter: 2019Q4

REPORT INFORMATION
  Report Type: Spontaneous
  Country: IN (occurrence: IN)
  Receive Date: 20191111
  Receipt Date: 20191209
  Transmission Date: 20200122
  Serious: Yes (Other)
  Sender: FDA-Public Use
  Company Number: IN-CIPLA LTD.-2019IN07301

PATIENT

DRUGS (1)
  1. ALFUSIN [Suspect]
     Active Substance: ALFUZOSIN HYDROCHLORIDE
     Indication: BENIGN PROSTATIC HYPERPLASIA
     Dosage: 10 MILLIGRAM, QD, AT BED TIME, MORE THAN 3 YEARS
     Route: 065

REACTIONS (2)
  - Lower urinary tract symptoms [Recovered/Resolved]
  - Therapy non-responder [Unknown]
